FAERS Safety Report 7405852-9 (Version None)
Quarter: 2011Q2

REPORT INFORMATION
  Report Type: 
  Country: None (occurrence: None)
  Receive Date: 20110411
  Receipt Date: 20110408
  Transmission Date: 20111010
  Serious: Yes (Life-Threatening, Hospitalization)
  Sender: FDA-Public Use
  Company Number: GB-PFIZER INC-2006100615

PATIENT
  Age: 45 Year
  Sex: Male
  Weight: 84.1 kg

DRUGS (2)
  1. SUNITINIB MALATE [Suspect]
     Indication: RENAL CELL CARCINOMA
     Dosage: 50 MG, 1X/DAY, 4 WEEKS ON , 2 WEEKS OFF
     Route: 048
     Dates: start: 20060721, end: 20060816
  2. ATENOLOL [Concomitant]
     Route: 048
     Dates: start: 20040101

REACTIONS (1)
  - FASCIITIS [None]
